FAERS Safety Report 11369332 (Version 1)
Quarter: 2015Q3

REPORT INFORMATION
  Report Type: Spontaneous
  Country: US (occurrence: US)
  Receive Date: 20150812
  Receipt Date: 20150812
  Transmission Date: 20151125
  Serious: No
  Sender: FDA-Public Use
  Company Number: US-JNJFOC-20150404245

PATIENT
  Sex: Male

DRUGS (2)
  1. STELARA [Suspect]
     Active Substance: USTEKINUMAB
     Indication: PUSTULAR PSORIASIS
     Route: 058
     Dates: start: 20150323
  2. METHOTREXATE [Concomitant]
     Active Substance: METHOTREXATE
     Route: 065

REACTIONS (6)
  - Hypertension [Unknown]
  - Dermatitis exfoliative [Recovering/Resolving]
  - Off label use [Unknown]
  - Blood urine present [Unknown]
  - Vision blurred [Unknown]
  - Erythema [Unknown]

NARRATIVE: CASE EVENT DATE: 20150401
